FAERS Safety Report 7053384-2 (Version None)
Quarter: 2010Q4

REPORT INFORMATION
  Report Type: 
  Country: None (occurrence: None)
  Receive Date: 20101020
  Receipt Date: 20101006
  Transmission Date: 20110411
  Serious: Yes (Other)
  Sender: FDA-Public Use
  Company Number: US-CELGENEUS-163-21880-10100847

PATIENT
  Sex: Female

DRUGS (2)
  1. REVLIMID [Suspect]
     Indication: MULTIPLE MYELOMA
     Route: 048
     Dates: start: 20070606, end: 20071126
  2. REVLIMID [Suspect]
     Route: 048
     Dates: start: 20100710

REACTIONS (6)
  - NAUSEA [None]
  - OEDEMA PERIPHERAL [None]
  - PERICARDIAL EFFUSION [None]
  - PRURITUS [None]
  - PULMONARY OEDEMA [None]
  - VOMITING [None]
